FAERS Safety Report 9758573 (Version 1)
Quarter: 2013Q4

REPORT INFORMATION
  Report Type: Spontaneous
  Country: US (occurrence: None)
  Receive Date: 20131216
  Receipt Date: 20131216
  Transmission Date: 20140711
  Serious: Yes (Death)
  Sender: FDA-Public Use
  Company Number: 2013020077(0)

PATIENT
  Age: 35 Year
  Sex: Male

DRUGS (3)
  1. CARISOPRODOL (CARISOPRODOL) [Suspect]
     Dosage: ORAL
  2. MEPROBAMATE (MEPROBAMATE) [Suspect]
     Dosage: ORAL
  3. ETHANOL [Suspect]
     Dosage: ORAL

REACTIONS (1)
  - Drug abuse [None]
